FAERS Safety Report 11738669 (Version 2)
Quarter: 2015Q4

REPORT INFORMATION
  Report Type: Spontaneous
  Country: US (occurrence: None)
  Receive Date: 20151113
  Receipt Date: 20151116
  Transmission Date: 20160304
  Serious: Yes (Other)
  Sender: FDA-Public Use
  Company Number: US-MDT-ADR-2015-02153

PATIENT
  Age: 37 Year
  Sex: Female

DRUGS (1)
  1. BACLOFEN INTRATHECAL [Suspect]
     Active Substance: BACLOFEN
     Indication: MUSCLE SPASTICITY

REACTIONS (6)
  - Tremor [None]
  - Dyspnoea [None]
  - Drug withdrawal syndrome [None]
  - Overdose [None]
  - Hyperhidrosis [None]
  - Depressed level of consciousness [None]
